FAERS Safety Report 5285771-7 (Version None)
Quarter: 2007Q1

REPORT INFORMATION
  Report Type: 
  Country: None (occurrence: None)
  Receive Date: 20070128
  Receipt Date: 20061030
  Transmission Date: 20070707
  Serious: No
  Sender: FDA-Public Use
  Company Number: POMP-10858

PATIENT
  Age: 5 Month
  Sex: Female
  Weight: 8 kg

DRUGS (3)
  1. MYOZYME [Suspect]
     Indication: GLYCOGEN STORAGE DISEASE TYPE II
     Dosage: 20 MG/KG IV
     Route: 042
     Dates: start: 20061027
  2. TYLENOL [Concomitant]
  3. BENADRYL [Concomitant]

REACTIONS (1)
  - BRADYCARDIA [None]
